FAERS Safety Report 9878556 (Version 3)
Quarter: 2014Q1

REPORT INFORMATION
  Report Type: Report from Study
  Country: AU (occurrence: AU)
  Receive Date: 20140206
  Receipt Date: 20140228
  Transmission Date: 20141002
  Serious: Yes (Hospitalization)
  Sender: FDA-Public Use
  Company Number: AU-BRISTOL-MYERS SQUIBB COMPANY-19967025

PATIENT
  Age: 74 Year
  Sex: Female

DRUGS (13)
  1. ABATACEPT SUBQ INJECTION 125MG/ML [Suspect]
     Indication: RHEUMATOID ARTHRITIS
     Route: 058
     Dates: start: 20131224
  2. TRAMAL [Concomitant]
     Dosage: INJ
  3. OXYCONTIN [Concomitant]
  4. GABAPENTIN [Concomitant]
  5. OROXINE [Concomitant]
  6. MICARDIS PLUS [Concomitant]
  7. PARIET [Concomitant]
  8. ASPIRIN [Concomitant]
  9. METHOTREXATE [Concomitant]
  10. FOLIC ACID [Concomitant]
  11. MOBIC [Concomitant]
  12. PANADOL [Concomitant]
  13. ENDONE [Concomitant]

REACTIONS (4)
  - Urinary tract infection [Recovered/Resolved with Sequelae]
  - Confusional state [Recovered/Resolved with Sequelae]
  - Cerebrovascular accident [Recovered/Resolved with Sequelae]
  - Memory impairment [Unknown]
